FAERS Safety Report 10145594 (Version 2)
Quarter: 2014Q2

REPORT INFORMATION
  Report Type: Spontaneous
  Country: JP (occurrence: JP)
  Receive Date: 20140501
  Receipt Date: 20140602
  Transmission Date: 20141212
  Serious: Yes (Other)
  Sender: FDA-Public Use
  Company Number: JP-ASTELLAS-2014JP004331

PATIENT
  Age: 5 Decade
  Sex: Female

DRUGS (3)
  1. GRACEPTOR [Suspect]
     Indication: RENAL TRANSPLANT
     Dosage: DOSE UNKNOWN
     Route: 048
  2. ZITHROMAC [Suspect]
     Indication: PRODUCT USED FOR UNKNOWN INDICATION
     Route: 048
  3. RAPIACTA [Concomitant]
     Indication: PRODUCT USED FOR UNKNOWN INDICATION
     Route: 041

REACTIONS (1)
  - Ventricular tachycardia [Unknown]
